FAERS Safety Report 5633267-2 (Version None)
Quarter: 2008Q1

REPORT INFORMATION
  Report Type: 
  Country: None (occurrence: None)
  Receive Date: 20080221
  Receipt Date: 20080218
  Transmission Date: 20080703
  Serious: Yes (Other)
  Sender: FDA-Public Use
  Company Number: FR-MERCK-0802FRA00066

PATIENT
  Age: 48 Year
  Sex: Female

DRUGS (9)
  1. EMEND [Suspect]
     Indication: PROPHYLAXIS OF NAUSEA AND VOMITING
     Route: 048
     Dates: start: 20080129, end: 20080129
  2. EMEND [Suspect]
     Route: 048
     Dates: start: 20080130, end: 20080131
  3. CISPLATIN [Concomitant]
     Indication: NON-SMALL CELL LUNG CANCER
     Route: 042
     Dates: start: 20080129, end: 20080129
  4. VINORELBINE TARTRATE [Concomitant]
     Indication: NON-SMALL CELL LUNG CANCER
     Route: 042
     Dates: start: 20080129, end: 20080129
  5. ONDANSETRON HYDROCHLORIDE [Concomitant]
     Indication: PROPHYLAXIS OF NAUSEA AND VOMITING
     Route: 042
     Dates: start: 20080129, end: 20080129
  6. METHYLPREDNISOLONE SODIUM SUCCINATE [Concomitant]
     Indication: PROPHYLAXIS OF NAUSEA AND VOMITING
     Route: 042
     Dates: start: 20080129, end: 20080129
  7. ATORVASTATIN CALCIUM [Concomitant]
     Indication: HYPERCHOLESTEROLAEMIA
     Route: 048
  8. PRAZEPAM [Concomitant]
     Indication: ANXIETY
     Route: 048
  9. PREDNISOLONE SODIUM METASULFOBENZOATE [Concomitant]
     Route: 048
     Dates: start: 20080130, end: 20080201

REACTIONS (3)
  - BLOOD ALKALINE PHOSPHATASE INCREASED [None]
  - GAMMA-GLUTAMYLTRANSFERASE INCREASED [None]
  - TRANSAMINASES INCREASED [None]
